FAERS Safety Report 7232158-3 (Version None)
Quarter: 2011Q1

REPORT INFORMATION
  Report Type: 
  Country: None (occurrence: None)
  Receive Date: 20110119
  Receipt Date: 20110112
  Transmission Date: 20110831
  Serious: No
  Sender: FDA-Public Use
  Company Number: US-BIOGENIDEC-2010BI018849

PATIENT
  Sex: Female

DRUGS (12)
  1. AMRIX [Concomitant]
  2. AMBIEN [Concomitant]
  3. TYSABRI [Suspect]
     Indication: MULTIPLE SCLEROSIS
     Route: 042
     Dates: start: 20081024
  4. EFFEXOR [Concomitant]
  5. TYLENOL PM [Concomitant]
  6. TOPAMAX [Concomitant]
  7. VITAMIN D [Concomitant]
  8. ROPINIDE HCL (NOS) [Concomitant]
  9. AMANTADINE HCL [Concomitant]
  10. XYZAL [Concomitant]
  11. AXERT [Concomitant]
  12. OXYBUTRIN [Concomitant]

REACTIONS (3)
  - GALLBLADDER DISORDER [None]
  - ENDODONTIC PROCEDURE [None]
  - NEPHROLITHIASIS [None]
